FAERS Safety Report 17939399 (Version 1)
Quarter: 2020Q2

REPORT INFORMATION
  Report Type: Report from Study
  Country: FR (occurrence: FR)
  Receive Date: 20200624
  Receipt Date: 20200624
  Transmission Date: 20200714
  Serious: Yes (Other)
  Sender: FDA-Public Use
  Company Number: FR-JNJFOC-20200625158

PATIENT
  Sex: Male

DRUGS (2)
  1. SPRAVATO [Suspect]
     Active Substance: ESKETAMINE
     Indication: DEPRESSION
     Route: 045
     Dates: start: 201709
  2. SPRAVATO [Suspect]
     Active Substance: ESKETAMINE

REACTIONS (8)
  - Hallucination [Unknown]
  - Dizziness [Unknown]
  - Dissociation [Unknown]
  - Morbid thoughts [Recovered/Resolved]
  - Discomfort [Unknown]
  - Anxiety [Unknown]
  - Euphoric mood [Unknown]
  - Headache [Unknown]
